FAERS Safety Report 17954321 (Version 1)
Quarter: 2020Q2

REPORT INFORMATION
  Report Type: Spontaneous
  Country: GR (occurrence: GR)
  Receive Date: 20200629
  Receipt Date: 20200629
  Transmission Date: 20200714
  Serious: Yes (Life-Threatening, Hospitalization, Other)
  Sender: FDA-Public Use
  Company Number: GR-ROCHE-2629500

PATIENT
  Age: 27 Year
  Sex: Female
  Weight: 105 kg

DRUGS (3)
  1. TOCILIZUMAB. [Suspect]
     Active Substance: TOCILIZUMAB
     Indication: PRODUCT USED FOR UNKNOWN INDICATION
     Dosage: 3 DOSES?START DATE 01/MAY/2020
     Route: 065
     Dates: end: 20200502
  2. ZOVIRAX [Concomitant]
     Active Substance: ACYCLOVIR
  3. KEPPRA [Concomitant]
     Active Substance: LEVETIRACETAM

REACTIONS (4)
  - Neutropenia [Recovered/Resolved]
  - Nephropathy toxic [Recovered/Resolved]
  - Cytokine release syndrome [Recovered/Resolved]
  - Tremor [Not Recovered/Not Resolved]

NARRATIVE: CASE EVENT DATE: 20200428
